FAERS Safety Report 10271704 (Version 1)
Quarter: 2014Q3

REPORT INFORMATION
  Report Type: Spontaneous
  Country: US (occurrence: US)
  Receive Date: 20140701
  Receipt Date: 20140701
  Transmission Date: 20150326
  Serious: No
  Sender: FDA-Public Use
  Company Number: US-SA-2014SA016177

PATIENT
  Age: 33 Year
  Sex: Female
  Weight: 100 kg

DRUGS (2)
  1. CEREZYME [Suspect]
     Active Substance: IMIGLUCERASE
     Indication: GAUCHER^S DISEASE
     Dosage: DOSE:60 UNIT(S)/KILOGRAM BODYWEIGHT
     Route: 042
     Dates: start: 20130318
  2. BENADRYL [Concomitant]
     Active Substance: DIPHENHYDRAMINE HYDROCHLORIDE
     Indication: PREMEDICATION
     Route: 042

REACTIONS (7)
  - Chest pain [Unknown]
  - Sneezing [Unknown]
  - Diarrhoea [Unknown]
  - Fatigue [Unknown]
  - Chills [Unknown]
  - Nausea [Unknown]
  - Feeling cold [Unknown]
